FAERS Safety Report 24895562 (Version 3)
Quarter: 2025Q1

REPORT INFORMATION
  Report Type: Spontaneous
  Country: CR (occurrence: CR)
  Receive Date: 20250128
  Receipt Date: 20250321
  Transmission Date: 20250408
  Serious: No
  Sender: PFIZER
  Company Number: CR-PFIZER INC-PV202500006419

PATIENT
  Age: 4 Year
  Sex: Male

DRUGS (1)
  1. GENOTROPIN [Suspect]
     Active Substance: SOMATROPIN
     Dosage: 0.5 MG, DAILY
     Dates: start: 202408

REACTIONS (1)
  - Device defective [Unknown]
